FAERS Safety Report 16641799 (Version 1)
Quarter: 2019Q3

REPORT INFORMATION
  Report Type: Spontaneous
  Country: US (occurrence: US)
  Receive Date: 20190726
  Receipt Date: 20190726
  Transmission Date: 20191004
  Serious: Yes (Life-Threatening, Hospitalization)
  Sender: FDA-Public Use
  Company Number: None

PATIENT
  Age: 48 Year
  Sex: Male

DRUGS (1)
  1. LISINOPRIL. [Suspect]
     Active Substance: LISINOPRIL

REACTIONS (6)
  - Therapy cessation [None]
  - Diarrhoea [None]
  - Rash pruritic [None]
  - Dyspnoea [None]
  - Pharyngeal swelling [None]
  - Vomiting [None]

NARRATIVE: CASE EVENT DATE: 20190715
